FAERS Safety Report 9505408 (Version 1)
Quarter: 2013Q1

REPORT INFORMATION
  Report Type: Spontaneous
  Country: US (occurrence: None)
  Receive Date: 20130220
  Receipt Date: 20130220
  Transmission Date: 20140127
  Serious: No
  Sender: FDA-Public Use
  Company Number: 1000041428

PATIENT
  Sex: Female

DRUGS (3)
  1. VIIBRYD (VILAZODONE HYDROCHLORIDE) [Suspect]
  2. WELLBUTRIN (BUPROPION HYDROCHLORIDE) (BUPROPION HYDOCHLORIDE) [Concomitant]
  3. ANTIHYPERTENSIVES (NOS) (ANTIHYPERTENSIVES (NOS)) (ANTIHYPERTENSIVES (NOS)) [Concomitant]

REACTIONS (1)
  - Blood pressure increased [None]
